FAERS Safety Report 14602379 (Version 2)
Quarter: 2018Q2

REPORT INFORMATION
  Report Type: Spontaneous
  Country: US (occurrence: US)
  Receive Date: 20180306
  Receipt Date: 20180504
  Transmission Date: 20180711
  Serious: Yes (Hospitalization, Other)
  Sender: FDA-Public Use
  Company Number: US-PFIZER INC-2018085120

PATIENT
  Age: 81 Year
  Sex: Male

DRUGS (1)
  1. AMIODARONE HCL [Suspect]
     Active Substance: AMIODARONE HYDROCHLORIDE
     Indication: CARDIAC FAILURE CONGESTIVE
     Dosage: UNK
     Dates: start: 20170414

REACTIONS (4)
  - Tremor [Recovered/Resolved]
  - Confusional state [Unknown]
  - Lung disorder [Unknown]
  - Hallucination [Unknown]

NARRATIVE: CASE EVENT DATE: 20170423
